FAERS Safety Report 12723539 (Version 1)
Quarter: 2016Q3

REPORT INFORMATION
  Report Type: Spontaneous
  Country: US (occurrence: US)
  Receive Date: 20160906
  Receipt Date: 20160906
  Transmission Date: 20161109
  Serious: No
  Sender: FDA-Public Use
  Company Number: None

PATIENT
  Age: 49 Year
  Sex: Female

DRUGS (2)
  1. CYCLOSPORINE SOL MODIFIED * [Suspect]
     Active Substance: CYCLOSPORINE
     Indication: AUTOIMMUNE HAEMOLYTIC ANAEMIA
  2. CYCLOSPORINE SOL MODIFIED * [Suspect]
     Active Substance: CYCLOSPORINE
     Indication: MACROCYTOSIS

REACTIONS (4)
  - Arthralgia [None]
  - Musculoskeletal pain [None]
  - Myalgia [None]
  - Feeling jittery [None]

NARRATIVE: CASE EVENT DATE: 20160530
